FAERS Safety Report 9784750 (Version 4)
Quarter: 2015Q4

REPORT INFORMATION
  Report Type: Report from Study
  Country: BR (occurrence: BR)
  Receive Date: 20131227
  Receipt Date: 20151209
  Transmission Date: 20160305
  Serious: Yes (Other)
  Sender: FDA-Public Use
  Company Number: BR-ROCHE-1326076

PATIENT
  Age: 52 Year
  Sex: Female
  Weight: 85 kg

DRUGS (5)
  1. XOLAIR [Suspect]
     Active Substance: OMALIZUMAB
     Indication: ASTHMA
     Route: 058
     Dates: start: 20120426
  2. BUDESONIDE. [Concomitant]
     Active Substance: BUDESONIDE
     Route: 065
  3. XOLAIR [Suspect]
     Active Substance: OMALIZUMAB
     Dosage: 1 AMPOULE IN EACH ARM AND 1 AMPOULE IN EACH GLUTEUS
     Route: 058
     Dates: start: 201310
  4. ALENIA (BRAZIL) [Concomitant]
     Active Substance: BUDESONIDE\FORMOTEROL FUMARATE
  5. SALBUTAMOL [Concomitant]
     Active Substance: ALBUTEROL
     Indication: DYSPNOEA

REACTIONS (19)
  - Fear [Not Recovered/Not Resolved]
  - Joint dislocation [Recovering/Resolving]
  - Ligament sprain [Recovering/Resolving]
  - Anxiety [Unknown]
  - Insomnia [Not Recovered/Not Resolved]
  - Tongue disorder [Unknown]
  - Asthenia [Not Recovered/Not Resolved]
  - Panic disorder [Not Recovered/Not Resolved]
  - Alopecia [Not Recovered/Not Resolved]
  - Drug dispensing error [Unknown]
  - Joint swelling [Recovering/Resolving]
  - Balance disorder [Recovering/Resolving]
  - Pain [Not Recovered/Not Resolved]
  - Accident [Unknown]
  - Nervousness [Not Recovered/Not Resolved]
  - Dyspnoea exertional [Not Recovered/Not Resolved]
  - Haemarthrosis [Unknown]
  - Fall [Unknown]
  - Abasia [Not Recovered/Not Resolved]

NARRATIVE: CASE EVENT DATE: 20131111
